APPROVED DRUG PRODUCT: TERIPARATIDE
Active Ingredient: TERIPARATIDE
Strength: 0.56MG/2.24ML (0.25MG/ML)
Dosage Form/Route: SOLUTION;SUBCUTANEOUS
Application: N218771 | Product #001 | TE Code: AP
Applicant: ALMAJECT INC
Approved: Jun 4, 2024 | RLD: Yes | RS: Yes | Type: RX